FAERS Safety Report 5521069-7 (Version None)
Quarter: 2007Q4

REPORT INFORMATION
  Report Type: 
  Country: None (occurrence: None)
  Receive Date: 20071115
  Receipt Date: 20071107
  Transmission Date: 20080405
  Serious: Yes (Death, Other)
  Sender: FDA-Public Use
  Company Number: A-US2007-17485

PATIENT
  Age: 81 Year
  Sex: Female
  Weight: 46.3 kg

DRUGS (2)
  1. TRACLEER [Suspect]
     Indication: PULMONARY HYPERTENSION
     Dosage: 125 MG, BID, ORAL 62.5 MG,BID,ORAL
     Route: 048
     Dates: end: 20070801
  2. TRACLEER [Suspect]
     Indication: PULMONARY HYPERTENSION
     Dosage: 125 MG, BID, ORAL 62.5 MG,BID,ORAL
     Route: 048
     Dates: start: 20070129

REACTIONS (1)
  - LIVER FUNCTION TEST ABNORMAL [None]
